FAERS Safety Report 5912893-7 (Version None)
Quarter: 2008Q4

REPORT INFORMATION
  Report Type: 
  Country: None (occurrence: None)
  Receive Date: 20081006
  Receipt Date: 20080922
  Transmission Date: 20090506
  Serious: Yes (Hospitalization)
  Sender: FDA-Public Use
  Company Number: 8027619

PATIENT
  Age: 17 Year
  Sex: Female

DRUGS (1)
  1. THEOPHYLLINE [Suspect]

REACTIONS (8)
  - BLOOD CREATINE PHOSPHOKINASE ABNORMAL [None]
  - BLOOD GLUCOSE INCREASED [None]
  - DRUG TOXICITY [None]
  - EXTRASYSTOLES [None]
  - HYPOKALAEMIA [None]
  - MYOGLOBIN BLOOD INCREASED [None]
  - SUICIDE ATTEMPT [None]
  - VENTRICULAR ARRHYTHMIA [None]
